FAERS Safety Report 20186575 (Version 4)
Quarter: 2025Q1

REPORT INFORMATION
  Report Type: Spontaneous
  Country: US (occurrence: US)
  Receive Date: 20211215
  Receipt Date: 20250307
  Transmission Date: 20250409
  Serious: Yes (Hospitalization, Other)
  Sender: ACCORD
  Company Number: US-Accord-247158

PATIENT
  Age: 49 Year
  Sex: Female
  Weight: 99.79 kg

DRUGS (11)
  1. CARBOPLATIN [Suspect]
     Active Substance: CARBOPLATIN
     Indication: Breast cancer
  2. DOCETAXEL [Suspect]
     Active Substance: DOCETAXEL
     Indication: Breast cancer
     Route: 042
     Dates: start: 20181108, end: 20181108
  3. ADRIAMYCIN [Suspect]
     Active Substance: DOXORUBICIN HYDROCHLORIDE
     Indication: Breast cancer
  4. TAXOL [Suspect]
     Active Substance: PACLITAXEL
     Indication: Breast cancer
  5. DOCETAXEL [Suspect]
     Active Substance: DOCETAXEL
     Indication: Breast cancer
     Route: 042
     Dates: start: 20181115, end: 20181115
  6. DOCETAXEL [Suspect]
     Active Substance: DOCETAXEL
     Indication: Breast cancer
     Dosage: FREQUENCY: WEEKLY
     Route: 042
     Dates: start: 20181121, end: 20181121
  7. DOCETAXEL [Suspect]
     Active Substance: DOCETAXEL
     Indication: Breast cancer
     Dosage: FREQUENCY: WEEKLY
     Route: 042
     Dates: start: 20181129, end: 20181129
  8. DOCETAXEL [Suspect]
     Active Substance: DOCETAXEL
     Indication: Breast cancer
     Dosage: FREQUENCY: WEEKLY
     Route: 042
     Dates: start: 20181213, end: 20181213
  9. DOCETAXEL [Suspect]
     Active Substance: DOCETAXEL
     Indication: Breast cancer
     Dosage: FREQUENCY: WEEKLY
     Route: 042
     Dates: start: 20181220, end: 20181220
  10. DOCETAXEL [Suspect]
     Active Substance: DOCETAXEL
     Indication: Breast cancer
     Dosage: FREQUENCY: WEEKLY
     Route: 042
     Dates: start: 20190103, end: 20190103
  11. DOCETAXEL [Suspect]
     Active Substance: DOCETAXEL
     Indication: Breast cancer
     Dosage: FREQUENCY: WEEKLY
     Route: 042
     Dates: start: 20181206, end: 20181206

REACTIONS (3)
  - Dry eye [Unknown]
  - Dacryostenosis acquired [Not Recovered/Not Resolved]
  - Off label use [Unknown]

NARRATIVE: CASE EVENT DATE: 20181101
